FAERS Safety Report 4996564-X (Version None)
Quarter: 2006Q2

REPORT INFORMATION
  Report Type: 
  Country: None (occurrence: None)
  Receive Date: 20060505
  Receipt Date: 20060425
  Transmission Date: 20061013
  Serious: Yes (Other)
  Sender: FDA-Public Use
  Company Number: GXBR2006US00953

PATIENT
  Sex: Female

DRUGS (1)
  1. LORATADINE  TABLETS (NGX) (LORATADINE)  TABLETS [Suspect]

REACTIONS (2)
  - CONDITION AGGRAVATED [None]
  - CONVULSION [None]
